FAERS Safety Report 8953512 (Version 3)
Quarter: 2013Q2

REPORT INFORMATION
  Report Type: Report from Study
  Country: DE (occurrence: DE)
  Receive Date: 20121206
  Receipt Date: 20130516
  Transmission Date: 20140414
  Serious: Yes (Hospitalization, Other)
  Sender: FDA-Public Use
  Company Number: DE-ROCHE-1165243

PATIENT
  Age: 58 Year
  Sex: Female
  Weight: 65 kg

DRUGS (8)
  1. PERTUZUMAB [Suspect]
     Indication: BREAST CANCER
     Route: 042
     Dates: start: 20121121, end: 20130507
  2. TRASTUZUMAB [Suspect]
     Indication: BREAST CANCER
     Route: 042
     Dates: start: 20121121, end: 20130507
  3. PANTOPRAZOLE [Concomitant]
     Route: 048
     Dates: start: 20121205
  4. CARVEDILOL [Concomitant]
     Route: 048
     Dates: start: 20121205
  5. INDAPAMIDE [Concomitant]
     Route: 048
     Dates: start: 20121205
  6. SPIRONOLACTONE [Concomitant]
     Indication: HYPERTENSION
     Route: 048
     Dates: start: 20121205
  7. TORASEMIDE [Concomitant]
     Route: 048
     Dates: start: 20121205
  8. CLEXANE [Concomitant]
     Route: 058
     Dates: start: 20121205

REACTIONS (4)
  - Tachycardia [Unknown]
  - Pulmonary embolism [Unknown]
  - Disease progression [Unknown]
  - Dyspnoea [Unknown]
